FAERS Safety Report 7060556-X (Version None)
Quarter: 2010Q4

REPORT INFORMATION
  Report Type: 
  Country: None (occurrence: None)
  Receive Date: 20101025
  Receipt Date: 20101014
  Transmission Date: 20110411
  Serious: Yes (Hospitalization)
  Sender: FDA-Public Use
  Company Number: DE-ROCHE-729721

PATIENT
  Sex: Female
  Weight: 88 kg

DRUGS (5)
  1. BEVACIZUMAB [Suspect]
     Indication: BREAST CANCER
     Dosage: LAST DOSE PRIOR TO SAE: 15 SEPT 2010, DOSING: DAY 1 OF A 3 WEEK CYCLE (ROUTE AND DOSE A/P PROTOCOL)
     Route: 042
     Dates: start: 20100325
  2. CAPECITABINE [Suspect]
     Indication: BREAST CANCER
     Dosage: LAST DOSE PRIOR TO SAE 18 SEPT 2010, DOSING DAY 1-14 OF A 3 WEEK CYCLE (ROUTE AND DOSE A/P PROTOCOL)
     Route: 048
     Dates: start: 20100326
  3. BISOPROLOL [Concomitant]
     Dates: start: 20040101
  4. OPIPRAMOL [Concomitant]
     Dates: start: 20060101
  5. RAMIPRIL [Concomitant]
     Dates: start: 20070101

REACTIONS (1)
  - FEMORAL NECK FRACTURE [None]
